FAERS Safety Report 18285731 (Version 1)
Quarter: 2020Q3

REPORT INFORMATION
  Report Type: Spontaneous
  Country: PL (occurrence: PL)
  Receive Date: 20200919
  Receipt Date: 20200919
  Transmission Date: 20201103
  Serious: Yes (Hospitalization, Disabling, Other)
  Sender: FDA-Public Use
  Company Number: PL-AUROBINDO-AUR-APL-2020-048184

PATIENT
  Age: 20 Year
  Sex: Male

DRUGS (14)
  1. TROPICAMIDE. [Concomitant]
     Active Substance: TROPICAMIDE
     Indication: OPHTHALMIC HERPES SIMPLEX
     Dosage: UNK
     Route: 065
  2. GANCICLOVIR. [Suspect]
     Active Substance: GANCICLOVIR
     Indication: OPHTHALMIC HERPES SIMPLEX
     Dosage: 600 MILLIGRAM, ONCE A DAY
     Route: 042
  3. METRONIDAZOLE. [Suspect]
     Active Substance: METRONIDAZOLE
     Indication: PRODUCT USED FOR UNKNOWN INDICATION
     Dosage: UNK
     Route: 065
  4. CEFUROXIME. [Suspect]
     Active Substance: CEFUROXIME
     Indication: PRODUCT USED FOR UNKNOWN INDICATION
     Dosage: UNK
     Route: 065
  5. METHYLPREDNISOLONE. [Suspect]
     Active Substance: METHYLPREDNISOLONE
     Indication: RETINITIS VIRAL
     Dosage: 2000 MILLIGRAM, DAILY
     Route: 065
  6. ACYCLOVIR. [Suspect]
     Active Substance: ACYCLOVIR
     Indication: OPHTHALMIC HERPES SIMPLEX
     Dosage: UNK
     Route: 065
  7. ACYCLOVIR. [Suspect]
     Active Substance: ACYCLOVIR
     Dosage: 4000 MILLIGRAM, ONCE A DAY
     Route: 048
  8. LEVOFLOXACIN. [Concomitant]
     Active Substance: LEVOFLOXACIN
     Indication: OPHTHALMIC HERPES SIMPLEX
     Dosage: UNK
     Route: 065
  9. FLUCONAZOLE. [Suspect]
     Active Substance: FLUCONAZOLE
     Indication: PRODUCT USED FOR UNKNOWN INDICATION
     Dosage: UNK
     Route: 065
  10. CIPROFLOXACIN. [Suspect]
     Active Substance: CIPROFLOXACIN
     Indication: PRODUCT USED FOR UNKNOWN INDICATION
     Dosage: UNK
     Route: 065
  11. PHENYLEPHRINE [Concomitant]
     Active Substance: PHENYLEPHRINE HYDROCHLORIDE
     Indication: OPHTHALMIC HERPES SIMPLEX
     Dosage: UNK
     Route: 065
  12. ACYCLOVIR. [Suspect]
     Active Substance: ACYCLOVIR
     Dosage: 3000 MILLIGRAM, ONCE A DAY
     Route: 042
  13. DEXAMETHASONE. [Concomitant]
     Active Substance: DEXAMETHASONE
     Indication: OPHTHALMIC HERPES SIMPLEX
     Dosage: UNK
     Route: 065
  14. PREDNISONE. [Concomitant]
     Active Substance: PREDNISONE
     Indication: OPHTHALMIC HERPES SIMPLEX
     Dosage: IN DECREASING DOSE
     Route: 065

REACTIONS (5)
  - Necrotising retinitis [Not Recovered/Not Resolved]
  - Visual acuity reduced [Not Recovered/Not Resolved]
  - Cataract subcapsular [Not Recovered/Not Resolved]
  - Tractional retinal detachment [Not Recovered/Not Resolved]
  - Drug ineffective [Not Recovered/Not Resolved]
